FAERS Safety Report 13672952 (Version 8)
Quarter: 2018Q4

REPORT INFORMATION
  Report Type: Spontaneous
  Country: US (occurrence: US)
  Receive Date: 20170621
  Receipt Date: 20181029
  Transmission Date: 20190204
  Serious: Yes (Hospitalization, Other)
  Sender: FDA-Public Use
  Company Number: US-PFIZER INC-2017268732

PATIENT
  Age: 77 Year
  Sex: Female
  Weight: 79 kg

DRUGS (6)
  1. PREDNISONE. [Concomitant]
     Active Substance: PREDNISONE
     Indication: RHEUMATOID ARTHRITIS
     Dosage: 5 MG, WEEKLY (FROM 5MG/WEEK TO 1MG/WEEK AT TIME OF TEMPORARY STOP)
  2. XELJANZ [Suspect]
     Active Substance: TOFACITINIB CITRATE
     Indication: RHEUMATOID ARTHRITIS
     Dosage: 5 MG, 2X/DAY
     Route: 048
     Dates: start: 201601
  3. XELJANZ [Suspect]
     Active Substance: TOFACITINIB CITRATE
     Dosage: 5 MG, 2X/DAY (ONCE IN THE MORNING AND ONCE IN THE EVENING)
     Route: 048
  4. PREDNISONE. [Concomitant]
     Active Substance: PREDNISONE
     Dosage: 1 MG, WEEKLY (FROM 5MG/WEEK TO 1MG/WEEK AT TIME OF TEMPORARY STOP)
  5. METHOTREXATE. [Concomitant]
     Active Substance: METHOTREXATE
     Indication: RHEUMATOID ARTHRITIS
     Dosage: 8 DF, WEEKLY (8 YELLOW TABLETS TAKEN BY MOUTH EVERY THURSDAY)
     Route: 048
  6. FOLIC ACID. [Concomitant]
     Active Substance: FOLIC ACID
     Indication: RHEUMATOID ARTHRITIS
     Dosage: 1 DF, 1X/DAY
     Route: 048

REACTIONS (12)
  - Fall [Unknown]
  - Asthenia [Unknown]
  - Colitis [Unknown]
  - Pelvic fracture [Unknown]
  - Urinary tract infection [Unknown]
  - Soft tissue infection [Unknown]
  - Upper limb fracture [Recovering/Resolving]
  - Fractured sacrum [Unknown]
  - Diarrhoea [Recovered/Resolved]
  - Limb deformity [Unknown]
  - Arthritis infective [Unknown]
  - Dehydration [Unknown]

NARRATIVE: CASE EVENT DATE: 2017
